FAERS Safety Report 20390856 (Version 1)
Quarter: 2022Q1

REPORT INFORMATION
  Report Type: Spontaneous
  Country: US (occurrence: US)
  Receive Date: 20220128
  Receipt Date: 20220128
  Transmission Date: 20220424
  Serious: No
  Sender: FDA-Public Use
  Company Number: US-GLAXOSMITHKLINE-USCH2022003463

PATIENT
  Age: 89 Year
  Sex: Female

DRUGS (2)
  1. VOLTAREN ARTHRITIS PAIN [Suspect]
     Active Substance: DICLOFENAC SODIUM
     Indication: Spondylitis
     Dosage: UNK
     Dates: end: 20220124
  2. VOLTAREN ARTHRITIS PAIN [Suspect]
     Active Substance: DICLOFENAC SODIUM
     Indication: Sciatica

REACTIONS (3)
  - Product use in unapproved indication [Recovered/Resolved]
  - Drug effective for unapproved indication [Unknown]
  - Product administered at inappropriate site [Unknown]
